FAERS Safety Report 9516251 (Version 1)
Quarter: 2013Q3

REPORT INFORMATION
  Report Type: Spontaneous
  Country: GB (occurrence: GB)
  Receive Date: 20130911
  Receipt Date: 20130911
  Transmission Date: 20140515
  Serious: Yes (Hospitalization)
  Sender: FDA-Public Use
  Company Number: PHHY2013GB096682

PATIENT
  Age: 44 Year
  Sex: Male

DRUGS (1)
  1. ATORVASTATIN [Suspect]
     Indication: HYPERCHOLESTEROLAEMIA
     Dosage: 20 MG, UNK

REACTIONS (6)
  - Thrombocytopenic purpura [Recovered/Resolved]
  - Haematuria [Recovered/Resolved]
  - Purpura [Unknown]
  - Gingival bleeding [Unknown]
  - Petechiae [Unknown]
  - Haemorrhage [Unknown]
